FAERS Safety Report 23001854 (Version 2)
Quarter: 2023Q4

REPORT INFORMATION
  Report Type: Spontaneous
  Country: US (occurrence: US)
  Receive Date: 20230928
  Receipt Date: 20231113
  Transmission Date: 20240110
  Serious: No
  Sender: FDA-Public Use
  Company Number: US-NEUROCRINE BIOSCIENCES INC.-2023NBI08032

PATIENT
  Age: 56 Year
  Sex: Female

DRUGS (7)
  1. INGREZZA [Suspect]
     Active Substance: VALBENAZINE
     Indication: Tardive dyskinesia
     Dosage: 60 MILLIGRAM, QD
     Route: 048
     Dates: start: 20230818, end: 20230906
  2. INGREZZA [Suspect]
     Active Substance: VALBENAZINE
     Dosage: 40 MILLIGRAM, QD
     Route: 048
     Dates: start: 20230807, end: 20230818
  3. ATORVASTATIN [Concomitant]
     Active Substance: ATORVASTATIN
     Dosage: 40 MILLIGRAM
     Route: 048
     Dates: start: 20230203
  4. BUSPAR [Concomitant]
     Active Substance: BUSPIRONE HYDROCHLORIDE
     Indication: Panic disorder
     Dosage: 15 MILLIGRAM
     Route: 048
     Dates: start: 20220706
  5. CELECOXIB [Concomitant]
     Active Substance: CELECOXIB
     Dosage: 50 MILLIGRAM
     Route: 048
     Dates: start: 20230801
  6. GLIPIZIDE [Concomitant]
     Active Substance: GLIPIZIDE
     Dosage: 5 MILLIGRAM
     Route: 048
     Dates: start: 20220802
  7. HYDROXYZINE [Concomitant]
     Active Substance: HYDROXYZINE HYDROCHLORIDE
     Indication: Panic disorder
     Dosage: 50 MILLIGRAM
     Route: 048
     Dates: start: 20220802

REACTIONS (1)
  - Urticaria [Recovered/Resolved]
